FAERS Safety Report 5874743-7 (Version None)
Quarter: 2008Q3

REPORT INFORMATION
  Report Type: 
  Country: None (occurrence: None)
  Receive Date: 20080909
  Receipt Date: 20080827
  Transmission Date: 20090109
  Serious: Yes (Other)
  Sender: FDA-Public Use
  Company Number: CA-SOLVAY-00208004091

PATIENT
  Age: 74 Year
  Sex: Male

DRUGS (6)
  1. COVERSYL [Interacting]
     Indication: HYPERTENSION
     Dosage: DAILY DOSE: 4 MILLIGRAM(S)
     Route: 048
     Dates: start: 20080701, end: 20080801
  2. KEFLEX [Suspect]
     Indication: LOCALISED INFECTION
     Dosage: DAILY DOSE:  UNKNOWN
     Route: 065
     Dates: start: 20080101
  3. ZITHROMAX [Suspect]
     Indication: LOCALISED INFECTION
     Dosage: DAILY DOSE:  UNKNOWN
     Route: 065
     Dates: start: 20080101
  4. CLINDAMYCIN HCL [Suspect]
     Indication: LOCALISED INFECTION
     Dosage: DAILY DOSE:  UNKNOWN
     Route: 065
     Dates: start: 20080101
  5. LEVAQUIN [Suspect]
     Indication: LOCALISED INFECTION
     Dosage: DAILY DOSE:  UNKNOWN
     Route: 065
     Dates: start: 20080101
  6. TETRACYCLINE [Suspect]
     Indication: LOCALISED INFECTION
     Dosage: DAILY DOSE:  UNKNOWN
     Route: 065
     Dates: start: 20080101

REACTIONS (2)
  - DRUG INTERACTION [None]
  - URTICARIA [None]
